FAERS Safety Report 12230814 (Version 3)
Quarter: 2016Q3

REPORT INFORMATION
  Report Type: Spontaneous
  Country: US (occurrence: US)
  Receive Date: 20160401
  Receipt Date: 20160912
  Transmission Date: 20161109
  Serious: Yes (Hospitalization, Other)
  Sender: FDA-Public Use
  Company Number: US-JNJFOC-20160301380

PATIENT
  Age: 42 Year
  Sex: Female

DRUGS (1)
  1. XARELTO [Suspect]
     Active Substance: RIVAROXABAN
     Indication: THROMBOSIS
     Route: 048
     Dates: start: 20150823, end: 20151130

REACTIONS (3)
  - Internal haemorrhage [Unknown]
  - Cerebral haemorrhage [Unknown]
  - Gastrointestinal haemorrhage [Unknown]

NARRATIVE: CASE EVENT DATE: 201508
